FAERS Safety Report 10642547 (Version 2)
Quarter: 2015Q1

REPORT INFORMATION
  Report Type: Spontaneous
  Country: US (occurrence: None)
  Receive Date: 20141208
  Receipt Date: 20150224
  Transmission Date: 20150720
  Serious: Yes (Other)
  Sender: FDA-Public Use
  Company Number: US-H14001-14-01771

PATIENT
  Age: 64 Year
  Sex: Female
  Weight: 75.1 kg

DRUGS (27)
  1. MICAFUNGIN (MICAFUNGIN) [Concomitant]
     Active Substance: MICAFUNGIN
  2. DOCUSATE (DOCUSATE) [Concomitant]
     Active Substance: DOCUSATE
  3. MORPHINE (MORPHINE) [Concomitant]
  4. MOXIFLOXACIN (MOXIFLOXACIN) [Concomitant]
     Active Substance: MOXIFLOXACIN
  5. LASIX [Concomitant]
     Active Substance: FUROSEMIDE
  6. MIRALAX (MACROGOL) [Concomitant]
  7. VALTREX [Concomitant]
     Active Substance: VALACYCLOVIR HYDROCHLORIDE
  8. DAUNORUBICIN HCL [Suspect]
     Active Substance: DAUNORUBICIN HYDROCHLORIDE
     Indication: ACUTE MYELOID LEUKAEMIA
     Dates: start: 20140627, end: 20140629
  9. MEROPENEM (MEROPENEM) [Suspect]
     Active Substance: MEROPENEM
     Indication: PROPHYLAXIS
     Dosage: 1 GM, 1 IN 8 HR
     Route: 042
     Dates: start: 20140712, end: 20140729
  10. LOPERAMIDE (LOPERAMIDE) [Concomitant]
     Active Substance: LOPERAMIDE
  11. PIPERACILLIN (PIPERACILLIN) [Concomitant]
  12. SEVELAMER (SEVELAMER) [Concomitant]
  13. STUDY DRUG [Suspect]
     Active Substance: INVESTIGATIONAL PRODUCT
     Indication: ACUTE MYELOID LEUKAEMIA
     Dosage: 1 GM, 1 IN 8 HR, IV
     Route: 048
     Dates: start: 20140624
  14. ONDANSETRON. [Concomitant]
     Active Substance: ONDANSETRON
  15. KCL (POTASSIUM CHLORIDE) [Concomitant]
  16. ZOSYN (PIP/TAZO) (PIPERACILLIN SODIUM, TAZOBACTAM SODIUIM) [Concomitant]
  17. CYTARABINE. [Suspect]
     Active Substance: CYTARABINE
     Indication: ACUTE MYELOID LEUKAEMIA
     Dosage: ON DAYS 1-7
     Route: 042
     Dates: start: 20140627, end: 20140704
  18. CAPTOPRIL (CAPTOPRIL) [Concomitant]
  19. ACETAMINOPHEN (ACETAMINOPHEN) [Concomitant]
     Active Substance: ACETAMINOPHEN
  20. LORAZEPAM (LORAZEPAM) [Concomitant]
     Active Substance: LORAZEPAM
  21. OXYCODONE (OXYCODONE) [Concomitant]
     Active Substance: OXYCODONE
  22. PANTOPRAZOLE (PANTOPRAZOLE) [Concomitant]
     Active Substance: PANTOPRAZOLE SODIUM
  23. VANCOMYCIN (VANCOMYCIN) [Concomitant]
     Active Substance: VANCOMYCIN
  24. ALLOPURINOL (ALLOPURINOL) [Concomitant]
     Active Substance: ALLOPURINOL
  25. CHOLECALCIFEROL (COLECALCIFEROL) [Concomitant]
  26. SENNA [Concomitant]
     Active Substance: SENNA LEAF\SENNOSIDES\SENNOSIDES A AND B
  27. LACTULOSE (LACTULOSE) [Concomitant]
     Active Substance: LACTULOSE

REACTIONS (22)
  - Platelet count decreased [None]
  - Dyskinesia [None]
  - Loss of consciousness [None]
  - Blood pressure increased [None]
  - Duodenitis [None]
  - Cholelithiasis [None]
  - Fatigue [None]
  - Abdominal pain upper [None]
  - Hyperhidrosis [None]
  - Pancreatitis acute [None]
  - Biliary dilatation [None]
  - Syncope [None]
  - Mucosal inflammation [None]
  - Haemoglobin decreased [None]
  - Malaise [None]
  - Unresponsive to stimuli [None]
  - Hepatic cyst [None]
  - Upper gastrointestinal haemorrhage [None]
  - Presyncope [None]
  - Haematocrit decreased [None]
  - Haemorrhage [None]
  - Gastrointestinal haemorrhage [None]

NARRATIVE: CASE EVENT DATE: 20140712
